FAERS Safety Report 5501420-4 (Version None)
Quarter: 2007Q4

REPORT INFORMATION
  Report Type: 
  Country: None (occurrence: None)
  Receive Date: 20071026
  Receipt Date: 20071026
  Transmission Date: 20080405
  Serious: No
  Sender: FDA-Public Use
  Company Number: None

PATIENT
  Sex: Female

DRUGS (4)
  1. AVELOX [Suspect]
     Indication: ACUTE SINUSITIS
     Dosage: 400MG QD PO
     Route: 048
     Dates: start: 20070924
  2. ALLEGRA D 24 HOUR [Concomitant]
  3. NASACORT [Concomitant]
  4. ADVAIR DISKUS 100/50 [Concomitant]

REACTIONS (3)
  - BACK PAIN [None]
  - CHEST PAIN [None]
  - PAIN IN EXTREMITY [None]
